FAERS Safety Report 24252519 (Version 4)
Quarter: 2025Q1

REPORT INFORMATION
  Report Type: Spontaneous
  Country: US (occurrence: US)
  Receive Date: 20240827
  Receipt Date: 20250106
  Transmission Date: 20250408
  Serious: Yes (Disabling, Other)
  Sender: AMGEN
  Company Number: US-AMGEN-USASP2024165993

PATIENT
  Age: 41 Year
  Sex: Female

DRUGS (69)
  1. TEPEZZA [Suspect]
     Active Substance: TEPROTUMUMAB-TRBW
     Indication: Endocrine ophthalmopathy
     Dosage: 1500 MILLIGRAM, Q3WK
     Route: 042
     Dates: start: 20200727
  2. TEPEZZA [Suspect]
     Active Substance: TEPROTUMUMAB-TRBW
     Indication: Graves^ disease
     Dosage: 2240 MILLIGRAM, Q3WK
     Route: 042
     Dates: start: 20200817
  3. TEPEZZA [Suspect]
     Active Substance: TEPROTUMUMAB-TRBW
     Dosage: 2240 MILLIGRAM, Q3WK
     Route: 042
     Dates: start: 20200908
  4. TEPEZZA [Suspect]
     Active Substance: TEPROTUMUMAB-TRBW
     Dosage: 2240 MILLIGRAM, Q3WK
     Route: 042
     Dates: start: 20200928
  5. TEPEZZA [Suspect]
     Active Substance: TEPROTUMUMAB-TRBW
     Dosage: 2240 MILLIGRAM, Q3WK
     Route: 042
     Dates: start: 20201019
  6. TEPEZZA [Suspect]
     Active Substance: TEPROTUMUMAB-TRBW
     Dosage: 2240 MILLIGRAM, Q3WK
     Route: 042
     Dates: start: 20201109
  7. TEPEZZA [Suspect]
     Active Substance: TEPROTUMUMAB-TRBW
     Dosage: 2240 MILLIGRAM, Q3WK
     Route: 042
     Dates: start: 20201207
  8. TEPEZZA [Suspect]
     Active Substance: TEPROTUMUMAB-TRBW
     Dosage: 2240 MILLIGRAM, Q3WK
     Route: 042
     Dates: start: 20210112
  9. OTEZLA [Suspect]
     Active Substance: APREMILAST
     Indication: Product used for unknown indication
     Dosage: 30 MILLIGRAM, BID (TAKE 1 TABLET PO TWICE DAILY)
     Route: 048
     Dates: start: 20221021, end: 20230202
  10. OTEZLA [Suspect]
     Active Substance: APREMILAST
     Route: 065
     Dates: start: 20221025
  11. OTEZLA [Suspect]
     Active Substance: APREMILAST
     Route: 065
     Dates: start: 20221025
  12. OTEZLA [Suspect]
     Active Substance: APREMILAST
     Route: 065
     Dates: start: 20221025
  13. VENTOLIN HFA [Concomitant]
     Active Substance: ALBUTEROL SULFATE
     Indication: Wheezing
     Dosage: UNK UNK, Q4H (INHALE 2 PUFFS)
     Dates: start: 20220808
  14. AUGMENTIN [Concomitant]
     Active Substance: AMOXICILLIN\CLAVULANATE POTASSIUM
     Dosage: UNK UNK, BID (TAKE 1 TABLET FOR 7 DAYS)
     Route: 048
     Dates: start: 20220811, end: 20230922
  15. BIAXIN [Concomitant]
     Active Substance: CLARITHROMYCIN
     Dosage: 500 MILLIGRAM, BID (TAKE 1 TABLET FOR 7 DAYS)
     Route: 048
     Dates: start: 20220928, end: 20230922
  16. BENADRYL ALLERGY PLUS COLD [Concomitant]
     Active Substance: ACETAMINOPHEN\DIPHENHYDRAMINE HYDROCHLORIDE\PHENYLEPHRINE HYDROCHLORIDE
     Route: 048
     Dates: end: 20230922
  17. NEURONTIN [Concomitant]
     Active Substance: GABAPENTIN
     Dosage: 300 MILLIGRAM, BID
     Route: 048
     Dates: start: 20220913
  18. HYDRODIURIL [Concomitant]
     Active Substance: HYDROCHLOROTHIAZIDE
     Dosage: UNK, QD (TAKE 1 TABLET)
     Route: 048
     Dates: start: 20220222, end: 20230410
  19. ADVIL [Concomitant]
     Active Substance: IBUPROFEN
     Indication: Pain
     Dosage: 800 MILLIGRAM, Q8H
     Route: 048
  20. MOTRIN [Concomitant]
     Active Substance: IBUPROFEN
     Indication: Pain
     Dosage: 800 MILLIGRAM, Q8H
     Route: 048
  21. LILETTA [Concomitant]
     Active Substance: LEVONORGESTREL
     Dosage: 52 MILLIGRAM, QD (TAKE 1 INSERT) 19.5 MCG/24 HRS(5 YRS)
     Route: 015
  22. SYNTHROID [Concomitant]
     Active Substance: LEVOTHYROXINE SODIUM
     Dosage: UNK, QD (MONDAY SATURDAY AND ONE AND HALF TABLETS BY MOUTHON SUNDAY)
     Route: 048
     Dates: start: 20220614, end: 20230322
  23. LEVOTHROID [Concomitant]
     Active Substance: LEVOTHYROXINE SODIUM
     Dosage: UNK, QD (MONDAY SATURDAY AND ONE AND HALF TABLETS BY MOUTHON SUNDAY)
     Route: 048
     Dates: start: 20220614, end: 20230322
  24. PROMETHAZINE DM [Concomitant]
     Active Substance: DEXTROMETHORPHAN HYDROBROMIDE\PROMETHAZINE HYDROCHLORIDE
     Indication: Cough
     Dosage: 5 MILLILITER, QID (UP TO 7 DAYS.)
     Route: 048
     Dates: start: 20220808, end: 20230922
  25. POLY-VENT DM [Concomitant]
     Active Substance: DEXTROMETHORPHAN HYDROBROMIDE\GUAIFENESIN\PSEUDOEPHEDRINE HYDROCHLORIDE
     Indication: Nasal congestion
     Dosage: UNK, Q8H (FOR UP TO 1 O DAYS)
     Route: 048
     Dates: start: 20220928, end: 20230922
  26. ZANAFLEX [Concomitant]
     Active Substance: TIZANIDINE HYDROCHLORIDE
     Indication: Muscle spasms
     Dosage: 4 MILLIGRAM, Q8H
     Route: 048
     Dates: start: 20210513, end: 20230922
  27. ULTRAM [Concomitant]
     Active Substance: TRAMADOL HYDROCHLORIDE
     Route: 065
     Dates: start: 20150720, end: 20230922
  28. VALTREX [Concomitant]
     Active Substance: VALACYCLOVIR HYDROCHLORIDE
     Dosage: 1000 MILLIGRAM, TID (1 TABLET FOR 7 DAYS)
     Route: 048
     Dates: start: 20220913, end: 20230922
  29. INFLUENZA VIRUS VACCINE [Concomitant]
     Active Substance: INFLUENZA VIRUS VACCINE
     Route: 065
     Dates: start: 20131022
  30. INFLUENZA VIRUS VACCINE [Concomitant]
     Active Substance: INFLUENZA VIRUS VACCINE
     Route: 065
     Dates: start: 20141107
  31. INFLUENZA VIRUS VACCINE [Concomitant]
     Active Substance: INFLUENZA VIRUS VACCINE
     Route: 065
     Dates: start: 20191101
  32. INFLUENZA VIRUS VACCINE [Concomitant]
     Active Substance: INFLUENZA VIRUS VACCINE
     Route: 065
     Dates: start: 20201013
  33. INFLUENZA VIRUS VACCINE [Concomitant]
     Active Substance: INFLUENZA VIRUS VACCINE
     Route: 065
     Dates: start: 20201014
  34. SARS-CoV-2 vaccine [Concomitant]
     Route: 065
     Dates: start: 20210101
  35. PFIZER-BIONTECH COVID-19 VACCINE [Concomitant]
     Active Substance: TOZINAMERAN
     Route: 030
     Dates: start: 20210226
  36. PFIZER-BIONTECH COVID-19 VACCINE [Concomitant]
     Active Substance: TOZINAMERAN
     Route: 030
     Dates: start: 20210319
  37. BOOSTRIX [Concomitant]
     Active Substance: TETANUS TOXOID, REDUCED DIPHTHERIA TOXOID AND ACELLULAR PERTUSSIS VACCINE, ADSORBED ANTIGENS
     Route: 030
     Dates: start: 20200302
  38. SALINE [Concomitant]
     Active Substance: SODIUM CHLORIDE
     Dosage: 10 MILLILITER, Q3WK
     Route: 042
  39. WATER [Concomitant]
     Active Substance: WATER
     Route: 042
  40. ARMOUR THYROID [Concomitant]
     Active Substance: THYROID, PORCINE
     Dosage: 15 MILLIGRAM, QD
     Route: 065
  41. BETAMETHASONE ACETATE [Concomitant]
     Active Substance: BETAMETHASONE ACETATE
     Indication: Skin irritation
     Route: 065
  42. DIPHENHYDRAMINE HYDROCHLORIDE [Concomitant]
     Active Substance: DIPHENHYDRAMINE HYDROCHLORIDE
     Route: 048
     Dates: start: 20201019
  43. PROAIR HFA [Concomitant]
     Active Substance: ALBUTEROL SULFATE
     Route: 061
  44. SCOPOLAMINE [Concomitant]
     Active Substance: SCOPOLAMINE
     Route: 061
  45. SCOPOLAMINE [Concomitant]
     Active Substance: SCOPOLAMINE
     Route: 061
     Dates: start: 20200910
  46. SCOPOLAMINE [Concomitant]
     Active Substance: SCOPOLAMINE
     Route: 061
     Dates: start: 20200927
  47. SCOPOLAMINE [Concomitant]
     Active Substance: SCOPOLAMINE
     Route: 061
     Dates: start: 20201019
  48. SCOPOLAMINE [Concomitant]
     Active Substance: SCOPOLAMINE
     Dosage: 1 MILLIGRAM, TID (PATCH) (1 MG/3 DAY PATCH TD 3 1 PATCH EPIDURAL)
     Route: 008
     Dates: start: 20201127
  49. SCOPOLAMINE [Concomitant]
     Active Substance: SCOPOLAMINE
     Route: 061
     Dates: start: 20201207
  50. LEVOTHYROXINE [Concomitant]
     Active Substance: LEVOTHYROXINE
     Dosage: 100 MICROGRAM, QD
     Route: 065
  51. BENADRYL [Concomitant]
     Active Substance: DIPHENHYDRAMINE HYDROCHLORIDE
     Route: 048
     Dates: start: 20200727
  52. BENADRYL [Concomitant]
     Active Substance: DIPHENHYDRAMINE HYDROCHLORIDE
     Route: 048
     Dates: start: 20200817
  53. BENADRYL [Concomitant]
     Active Substance: DIPHENHYDRAMINE HYDROCHLORIDE
     Route: 048
     Dates: start: 20200910
  54. BENADRYL [Concomitant]
     Active Substance: DIPHENHYDRAMINE HYDROCHLORIDE
     Route: 048
     Dates: start: 20200928
  55. BENADRYL [Concomitant]
     Active Substance: DIPHENHYDRAMINE HYDROCHLORIDE
     Route: 048
     Dates: start: 20201207
  56. ZOFRAN [Concomitant]
     Active Substance: ONDANSETRON HYDROCHLORIDE
     Route: 048
     Dates: start: 20200727
  57. ZOFRAN [Concomitant]
     Active Substance: ONDANSETRON HYDROCHLORIDE
     Route: 048
     Dates: start: 20200817
  58. ZOFRAN [Concomitant]
     Active Substance: ONDANSETRON HYDROCHLORIDE
     Route: 048
     Dates: start: 20200910
  59. ZOFRAN [Concomitant]
     Active Substance: ONDANSETRON HYDROCHLORIDE
     Route: 048
     Dates: start: 20200928
  60. ZOFRAN [Concomitant]
     Active Substance: ONDANSETRON HYDROCHLORIDE
     Route: 048
     Dates: start: 20201207
  61. ZOFRAN [Concomitant]
     Active Substance: ONDANSETRON HYDROCHLORIDE
     Route: 048
     Dates: start: 20210111
  62. HYDROCHLOROTHIAZIDE [Concomitant]
     Active Substance: HYDROCHLOROTHIAZIDE
     Route: 065
  63. LOPRESSOR [Concomitant]
     Active Substance: METOPROLOL TARTRATE
     Route: 065
  64. ALDACTAZIDE [Concomitant]
     Active Substance: HYDROCHLOROTHIAZIDE\SPIRONOLACTONE
     Route: 065
  65. PROBIOTICS NOS [Concomitant]
     Active Substance: PROBIOTICS NOS
     Route: 065
  66. TYLENOL [Concomitant]
     Active Substance: ACETAMINOPHEN
     Route: 065
  67. HYOSCYAMINE [Concomitant]
     Active Substance: HYOSCYAMINE
     Route: 065
  68. IBUPROFEN [Concomitant]
     Active Substance: IBUPROFEN
     Route: 065
  69. MAXITROL [Concomitant]
     Active Substance: DEXAMETHASONE\NEOMYCIN SULFATE\POLYMYXIN B SULFATE
     Route: 065

REACTIONS (40)
  - Endocrine ophthalmopathy [Unknown]
  - Graves^ disease [Unknown]
  - Deafness permanent [Not Recovered/Not Resolved]
  - Multiple sclerosis [Unknown]
  - Ankle fracture [Unknown]
  - Pain [Recovered/Resolved]
  - Emotional distress [Unknown]
  - Anxiety [Unknown]
  - Discomfort [Unknown]
  - Product use complaint [Unknown]
  - Tinnitus [Not Recovered/Not Resolved]
  - Body fat disorder [Unknown]
  - Blood glucose increased [Unknown]
  - Nasal septum deviation [Unknown]
  - Gastrooesophageal reflux disease [Unknown]
  - Herpes simplex [Unknown]
  - Nasal turbinate hypertrophy [Unknown]
  - Insulin resistance [Unknown]
  - Asthma [Unknown]
  - Reflux laryngitis [Unknown]
  - Glucose tolerance impaired [Unknown]
  - Psoriasis [Unknown]
  - Temporomandibular pain and dysfunction syndrome [Unknown]
  - Peripheral venous disease [Unknown]
  - Upper respiratory tract infection [Not Recovered/Not Resolved]
  - Sinus disorder [Unknown]
  - Ear congestion [Unknown]
  - Otorrhoea [Unknown]
  - Blood pressure diastolic decreased [Unknown]
  - Oedema [Unknown]
  - Blood pressure increased [Unknown]
  - Lethargy [Unknown]
  - Fatigue [Unknown]
  - Vision blurred [Unknown]
  - Muscle spasms [Unknown]
  - Diplopia [Unknown]
  - Menstrual disorder [Unknown]
  - Dysmenorrhoea [Unknown]
  - Nausea [Unknown]
  - Abdominal pain upper [Unknown]

NARRATIVE: CASE EVENT DATE: 20201019
